FAERS Safety Report 16417197 (Version 3)
Quarter: 2019Q2

REPORT INFORMATION
  Report Type: Spontaneous
  Country: US (occurrence: US)
  Receive Date: 20190611
  Receipt Date: 20190628
  Transmission Date: 20190711
  Serious: Yes (Other)
  Sender: FDA-Public Use
  Company Number: US-PFIZER INC-2019240996

PATIENT
  Sex: Female
  Weight: 65.32 kg

DRUGS (1)
  1. ESTRING [Suspect]
     Active Substance: ESTRADIOL
     Indication: NOCTURIA
     Dosage: 2 MG, UNK

REACTIONS (5)
  - Fungal infection [Unknown]
  - Product use in unapproved indication [Unknown]
  - Sinusitis [Unknown]
  - Pruritus [Recovered/Resolved]
  - Off label use [Unknown]
